FAERS Safety Report 5566028-3 (Version None)
Quarter: 2007Q4

REPORT INFORMATION
  Report Type: 
  Country: None (occurrence: None)
  Receive Date: 20071219
  Receipt Date: 20071210
  Transmission Date: 20080405
  Serious: Yes (Hospitalization, Other)
  Sender: FDA-Public Use
  Company Number: DE-JNJFOC-20071109896

PATIENT
  Age: 40 Year
  Sex: Female

DRUGS (2)
  1. TOPAMAX [Suspect]
     Indication: EPILEPSY
  2. KEPPRA [Concomitant]
     Route: 048

REACTIONS (4)
  - NEPHROLITHIASIS [None]
  - RENAL COLIC [None]
  - URETERIC RUPTURE [None]
  - URINARY TRACT INFECTION [None]
